FAERS Safety Report 7171525-3 (Version None)
Quarter: 2010Q4

REPORT INFORMATION
  Report Type: 
  Country: None (occurrence: None)
  Receive Date: 20101217
  Receipt Date: 20101210
  Transmission Date: 20110411
  Serious: Yes (Life-Threatening, Hospitalization, Other)
  Sender: FDA-Public Use
  Company Number: FR-PFIZER INC-2010168778

PATIENT
  Age: 53 Year
  Sex: Male

DRUGS (3)
  1. XANAX [Suspect]
     Indication: DRUG TOXICITY
     Route: 048
  2. SKENAN [Suspect]
     Indication: DRUG TOXICITY
     Route: 048
  3. PREVISCAN [Suspect]
     Indication: DRUG TOXICITY
     Route: 048

REACTIONS (14)
  - BLOOD PRESSURE INCREASED [None]
  - BRADYPNOEA [None]
  - COMA [None]
  - DEPRESSIVE SYMPTOM [None]
  - DRUG TOXICITY [None]
  - HAEMATOMA [None]
  - HYPERCAPNIA [None]
  - HYPERTONIA [None]
  - HYPOTHERMIA [None]
  - HYPOXIA [None]
  - INTENTIONAL DRUG MISUSE [None]
  - MOTOR DYSFUNCTION [None]
  - RHABDOMYOLYSIS [None]
  - SUICIDAL IDEATION [None]
